FAERS Safety Report 15246828 (Version 1)
Quarter: 2018Q3

REPORT INFORMATION
  Report Type: Report from Study
  Country: US (occurrence: US)
  Receive Date: 20180806
  Receipt Date: 20180806
  Transmission Date: 20181010
  Serious: Yes (Other)
  Sender: FDA-Public Use
  Company Number: PHEH2018US031609

PATIENT
  Sex: Female

DRUGS (1)
  1. GILENYA [Suspect]
     Active Substance: FINGOLIMOD HYDROCHLORIDE
     Indication: MULTIPLE SCLEROSIS
     Dosage: 0.5 MG, QD
     Route: 048
     Dates: start: 20171114

REACTIONS (7)
  - Tri-iodothyronine decreased [Unknown]
  - Pituitary tumour [Unknown]
  - Folliculitis [Unknown]
  - Thyroxine decreased [Unknown]
  - Heart rate decreased [Unknown]
  - Rash [Unknown]
  - Blood pressure decreased [Unknown]
